FAERS Safety Report 6572675-2 (Version None)
Quarter: 2010Q1

REPORT INFORMATION
  Report Type: 
  Country: None (occurrence: None)
  Receive Date: 20100205
  Receipt Date: 20100205
  Transmission Date: 20100710
  Serious: Yes (Hospitalization)
  Sender: FDA-Public Use
  Company Number: IT-WYE-G05512610

PATIENT
  Sex: Female

DRUGS (6)
  1. TAZOCIN [Suspect]
     Indication: ANTIBIOTIC PROPHYLAXIS
     Route: 042
     Dates: start: 20100202, end: 20100202
  2. KONAKION [Concomitant]
  3. PARIET [Concomitant]
  4. TRIATEC [Concomitant]
  5. QUESTRAN [Concomitant]
  6. DEURSIL [Concomitant]

REACTIONS (2)
  - INJECTION SITE PAIN [None]
  - PRESYNCOPE [None]
